FAERS Safety Report 11878136 (Version 1)
Quarter: 2015Q4

REPORT INFORMATION
  Report Type: Spontaneous
  Country: US (occurrence: US)
  Receive Date: 20151230
  Receipt Date: 20151230
  Transmission Date: 20160305
  Serious: No
  Sender: FDA-Public Use
  Company Number: US-009507513-1512USA006700

PATIENT
  Age: 19 Year
  Sex: Female
  Weight: 140.14 kg

DRUGS (1)
  1. NEXPLANON [Suspect]
     Active Substance: ETONOGESTREL
     Indication: CONTRACEPTION
     Dosage: 68 MG, EVERY 3 YEARS
     Route: 059
     Dates: start: 201410, end: 20151209

REACTIONS (2)
  - Implant site pain [Unknown]
  - Device breakage [Unknown]

NARRATIVE: CASE EVENT DATE: 20151209
